FAERS Safety Report 5135014-X (Version None)
Quarter: 2006Q4

REPORT INFORMATION
  Report Type: 
  Country: None (occurrence: None)
  Receive Date: 20060831
  Receipt Date: 20060502
  Transmission Date: 20070319
  Serious: No
  Sender: FDA-Public Use
  Company Number: 2006-BP-04334BP

PATIENT
  Age: 69 Year
  Sex: Female

DRUGS (8)
  1. SPIRIVA [Suspect]
     Indication: CHRONIC OBSTRUCTIVE PULMONARY DISEASE
     Dosage: 18 MCG (18 MCG,ONE DOSE),IH
     Route: 055
     Dates: start: 20060412, end: 20060412
  2. PREDNISONE TAB [Concomitant]
  3. HYZAAR [Concomitant]
  4. MUCINEX [Concomitant]
  5. TRIAMTERENE AND HYDROCHLOROTHIAZIDE [Concomitant]
  6. ALPRAZOLAM [Concomitant]
  7. NORVASC [Concomitant]
  8. ZOLOFT [Concomitant]

REACTIONS (1)
  - DYSPNOEA [None]
